FAERS Safety Report 6138481-8 (Version None)
Quarter: 2009Q1

REPORT INFORMATION
  Report Type: 
  Country: None (occurrence: None)
  Receive Date: 20090327
  Receipt Date: 20090317
  Transmission Date: 20090719
  Serious: Yes (Other)
  Sender: FDA-Public Use
  Company Number: 2009US000819

PATIENT
  Age: 72 Year

DRUGS (12)
  1. LEXISCAN [Suspect]
     Indication: SCAN MYOCARDIAL PERFUSION
     Dosage: 0.4 MG, IV NOS
     Route: 042
     Dates: start: 20090311, end: 20090311
  2. LASIX [Concomitant]
  3. MICRO-K (POTASSIUM CHLORIDE) [Concomitant]
  4. DIOVAN [Concomitant]
  5. SYNTHROID [Concomitant]
  6. OMEPRAZOLE [Concomitant]
  7. QUININE SULFATE (QUININE SULFATE) [Concomitant]
  8. ASPIRIN [Concomitant]
  9. LIPITOR [Concomitant]
  10. TOPROL-XL [Concomitant]
  11. PREMARIN [Concomitant]
  12. NITROGLYCERIN [Concomitant]

REACTIONS (3)
  - DYSPNOEA [None]
  - HEART RATE INCREASED [None]
  - HYPERTENSION [None]
